FAERS Safety Report 15077602 (Version 1)
Quarter: 2018Q2

REPORT INFORMATION
  Report Type: Spontaneous
  Country: MY (occurrence: MY)
  Receive Date: 20180627
  Receipt Date: 20180627
  Transmission Date: 20180711
  Serious: Yes (Other)
  Sender: FDA-Public Use
  Company Number: MY-009507513-1806MYS010479

PATIENT

DRUGS (1)
  1. KEYTRUDA [Suspect]
     Active Substance: PEMBROLIZUMAB
     Indication: HODGKIN^S DISEASE
     Dosage: 100 MG, UNK
     Route: 042

REACTIONS (2)
  - Neoplasm malignant [Unknown]
  - Pneumocystis jirovecii pneumonia [Recovering/Resolving]
